FAERS Safety Report 20992854 (Version 1)
Quarter: 2022Q2

REPORT INFORMATION
  Report Type: Report from Study
  Country: PK (occurrence: PK)
  Receive Date: 20220622
  Receipt Date: 20220622
  Transmission Date: 20220720
  Serious: Yes (Other)
  Sender: FDA-Public Use
  Company Number: PK-NOVARTISPH-NVSC2022PK139914

PATIENT
  Sex: Female

DRUGS (3)
  1. CYCLOSPORINE [Suspect]
     Active Substance: CYCLOSPORINE
     Indication: Transplant
     Dosage: 25 MG (5 TABS/DAY)
     Route: 048
     Dates: start: 20180901, end: 20190803
  2. CYCLOSPORINE [Suspect]
     Active Substance: CYCLOSPORINE
     Dosage: 25 MG (4 TABS/DAY)
     Route: 048
     Dates: start: 20190903, end: 20211130
  3. CYCLOSPORINE [Suspect]
     Active Substance: CYCLOSPORINE
     Dosage: 25 MILLIGRAM PER MILLILITRE, BID (1 ML)
     Route: 048
     Dates: start: 2021

REACTIONS (2)
  - Dementia [Not Recovered/Not Resolved]
  - Illness [Not Recovered/Not Resolved]

NARRATIVE: CASE EVENT DATE: 20210101
